FAERS Safety Report 17853931 (Version 3)
Quarter: 2020Q3

REPORT INFORMATION
  Report Type: Spontaneous
  Country: US (occurrence: US)
  Receive Date: 20200602
  Receipt Date: 20200703
  Transmission Date: 20201103
  Serious: Yes (Other)
  Sender: FDA-Public Use
  Company Number: US-ASTRAZENECA-2020SE70174

PATIENT
  Age: 832 Month
  Sex: Female
  Weight: 76.2 kg

DRUGS (5)
  1. TRESIBA [Concomitant]
     Active Substance: INSULIN DEGLUDEC
     Dosage: 10 UNITS AT NIGHT
     Route: 058
     Dates: start: 20200522
  2. FARXIGA [Suspect]
     Active Substance: DAPAGLIFLOZIN PROPANEDIOL
     Route: 048
     Dates: start: 202001
  3. FLUCONAZONE [Concomitant]
     Indication: FUNGAL INFECTION
     Dosage: 200.0MG UNKNOWN
     Route: 065
     Dates: start: 20200522, end: 20200522
  4. BYDUREON BCISE [Suspect]
     Active Substance: EXENATIDE
     Route: 058
     Dates: start: 202001
  5. CREAM FOR YEAST INFECTION [Concomitant]
     Indication: FUNGAL INFECTION
     Route: 065
     Dates: start: 202001

REACTIONS (6)
  - Mass [Not Recovered/Not Resolved]
  - Weight decreased [Not Recovered/Not Resolved]
  - Fungal infection [Recovered/Resolved]
  - Device leakage [Not Recovered/Not Resolved]
  - Cyst [Recovered/Resolved]
  - Cataract [Not Recovered/Not Resolved]

NARRATIVE: CASE EVENT DATE: 202001
